FAERS Safety Report 16007357 (Version 1)
Quarter: 2019Q1

REPORT INFORMATION
  Report Type: Spontaneous
  Country: MY (occurrence: MY)
  Receive Date: 20190226
  Receipt Date: 20190226
  Transmission Date: 20190418
  Serious: Yes (Other)
  Sender: FDA-Public Use
  Company Number: MY-ASTRAZENECA-2019SE28947

PATIENT
  Age: 1 Year
  Sex: Male

DRUGS (1)
  1. PULMICORT RESPULES [Suspect]
     Active Substance: BUDESONIDE
     Indication: WHEEZING
     Route: 055

REACTIONS (2)
  - Rash [Recovered/Resolved]
  - Tachypnoea [Recovered/Resolved]
